FAERS Safety Report 9494595 (Version 1)
Quarter: 2013Q3

REPORT INFORMATION
  Report Type: Report from Study
  Country: GB (occurrence: GB)
  Receive Date: 20130903
  Receipt Date: 20130903
  Transmission Date: 20140515
  Serious: Yes (Hospitalization)
  Sender: FDA-Public Use
  Company Number: GB-009507513-1309GBR000239

PATIENT
  Age: 74 Year
  Sex: 0
  Weight: 76 kg

DRUGS (3)
  1. ALENDRONATE SODIUM [Suspect]
     Indication: OSTEOPOROSIS
     Dosage: WEEKLY
     Dates: start: 20100331, end: 20130802
  2. ADCAL (CALCIUM CARBONATE) [Concomitant]
     Indication: OSTEOPOROSIS
     Dosage: DAILY
     Dates: start: 20100331
  3. OMEPRAZOLE [Concomitant]
     Indication: GASTROINTESTINAL DISORDER
     Dosage: DAILY
     Dates: start: 20070102

REACTIONS (2)
  - Spinal fracture [Unknown]
  - Spinal fracture [Unknown]
